FAERS Safety Report 9919810 (Version 1)
Quarter: 2014Q1

REPORT INFORMATION
  Report Type: Spontaneous
  Country: US (occurrence: US)
  Receive Date: 20140224
  Receipt Date: 20140224
  Transmission Date: 20141002
  Serious: No
  Sender: FDA-Public Use
  Company Number: US-PFIZER INC-2014051001

PATIENT
  Age: 64 Year
  Sex: Female
  Weight: 79.37 kg

DRUGS (3)
  1. LYRICA [Suspect]
     Indication: FIBROMYALGIA
     Dosage: 100 MG, 2X/DAY
  2. LYRICA [Suspect]
     Dosage: 25 MG, 4X/DAY
  3. LYRICA [Suspect]
     Dosage: 100 MG, 3X/DAY

REACTIONS (3)
  - Weight decreased [Unknown]
  - Drug tolerance [Unknown]
  - Weight increased [Unknown]
